FAERS Safety Report 18144356 (Version 1)
Quarter: 2020Q3

REPORT INFORMATION
  Report Type: Spontaneous
  Country: US (occurrence: US)
  Receive Date: 20200812
  Receipt Date: 20200812
  Transmission Date: 20201103
  Serious: Yes (Disabling)
  Sender: FDA-Public Use
  Company Number: None

PATIENT
  Age: 58 Year
  Sex: Female
  Weight: 54 kg

DRUGS (9)
  1. CRANBERRY. [Concomitant]
     Active Substance: CRANBERRY
  2. COLLAGEN [Concomitant]
     Active Substance: COLLAGEN
  3. VITAMIN D [Concomitant]
     Active Substance: VITAMIN D NOS
  4. CALCIUM [Concomitant]
     Active Substance: CALCIUM
  5. HCTZ [Concomitant]
     Active Substance: HYDROCHLOROTHIAZIDE
  6. VITAMIN C [Concomitant]
     Active Substance: ASCORBIC ACID
  7. WOMEN MULTIVITAMIN [Concomitant]
  8. COD LIVER OIL [Concomitant]
     Active Substance: COD LIVER OIL
  9. RECLAST [Suspect]
     Active Substance: ZOLEDRONIC ACID
     Indication: OSTEOPOROSIS
     Route: 042

REACTIONS (8)
  - Headache [None]
  - Body temperature increased [None]
  - Myalgia [None]
  - Arthralgia [None]
  - Pain [None]
  - Back pain [None]
  - Constipation [None]
  - Flank pain [None]

NARRATIVE: CASE EVENT DATE: 20171011
